FAERS Safety Report 4516466-2 (Version None)
Quarter: 2004Q4

REPORT INFORMATION
  Report Type: 
  Country: None (occurrence: None)
  Receive Date: 20041202
  Receipt Date: 20041019
  Transmission Date: 20050328
  Serious: Yes (Other)
  Sender: FDA-Public Use
  Company Number: PHBS2004JP13956

PATIENT
  Age: 74 Year
  Sex: Female
  Weight: 35 kg

DRUGS (7)
  1. RITALIN [Suspect]
     Indication: DEPRESSION
     Dosage: 30 MG/D
     Route: 048
     Dates: start: 20040501
  2. RITALIN [Suspect]
     Dosage: UNK, UNK
     Route: 048
     Dates: end: 20041014
  3. PAXIL [Concomitant]
     Dosage: 30 MG/D
     Route: 048
  4. DIGOXIN [Concomitant]
  5. VASOLAN [Concomitant]
     Dosage: 2 DF/D
  6. FAMOTIDINE [Concomitant]
  7. HYPEN [Concomitant]
     Dosage: 400 MG/D

REACTIONS (8)
  - EYE PAIN [None]
  - HYPERTHYROIDISM [None]
  - INFLAMMATION [None]
  - OROPHARYNGEAL SWELLING [None]
  - PHARYNGOLARYNGEAL PAIN [None]
  - PYREXIA [None]
  - TONSILLAR DISORDER [None]
  - TONSILLAR HYPERTROPHY [None]
